FAERS Safety Report 6612735-0 (Version None)
Quarter: 2010Q1

REPORT INFORMATION
  Report Type: 
  Country: None (occurrence: None)
  Receive Date: 20100303
  Receipt Date: 20100222
  Transmission Date: 20100710
  Serious: Yes (Hospitalization)
  Sender: FDA-Public Use
  Company Number: DE-ABBOTT-10P-062-0627698-00

PATIENT
  Sex: Male
  Weight: 82 kg

DRUGS (3)
  1. HUMIRA [Suspect]
     Indication: DRUG USE FOR UNKNOWN INDICATION
     Route: 058
     Dates: start: 20061001
  2. SULFASALAZINE [Concomitant]
     Indication: UVEITIS
     Route: 048
     Dates: start: 20090401
  3. ARCOXIA [Concomitant]
     Indication: PAIN
     Route: 048
     Dates: start: 20090101

REACTIONS (1)
  - RETINAL VASCULAR THROMBOSIS [None]
